FAERS Safety Report 4865738-0 (Version None)
Quarter: 2005Q4

REPORT INFORMATION
  Report Type: 
  Country: None (occurrence: None)
  Receive Date: 20051223
  Receipt Date: 20051215
  Transmission Date: 20060501
  Serious: Yes (Disabling)
  Sender: FDA-Public Use
  Company Number: PHBS2005NZ18525

PATIENT
  Age: 65 Year
  Sex: Male

DRUGS (3)
  1. AREDIA [Suspect]
     Indication: BONE DISORDER
     Dosage: 90 MG, QMO
     Route: 042
     Dates: start: 20021001, end: 20050401
  2. PAMIDRONATE DISODIUM (PAMISOL MAYNE PHARMA) [Suspect]
     Indication: BONE DISORDER
     Dosage: 90 MG, QMO
     Route: 042
     Dates: start: 20021001, end: 20050401
  3. ATENOLOL [Concomitant]
     Dosage: 100 MG/D
     Route: 048

REACTIONS (2)
  - IMPAIRED HEALING [None]
  - OSTEONECROSIS [None]
